FAERS Safety Report 18766739 (Version 1)
Quarter: 2021Q1

REPORT INFORMATION
  Report Type: Spontaneous
  Country: US (occurrence: US)
  Receive Date: 20210120
  Receipt Date: 20210120
  Transmission Date: 20210419
  Serious: Yes (Hospitalization)
  Sender: FDA-Public Use
  Company Number: None

PATIENT
  Age: 54 Year
  Sex: Female
  Weight: 121 kg

DRUGS (16)
  1. NYSTOP [Concomitant]
     Active Substance: NYSTATIN
  2. DIAZEPAM. [Concomitant]
     Active Substance: DIAZEPAM
  3. ROSUVASTATIN. [Concomitant]
     Active Substance: ROSUVASTATIN
  4. ESCITALOPRAM [Concomitant]
     Active Substance: ESCITALOPRAM OXALATE
  5. TACROLIMUS. [Concomitant]
     Active Substance: TACROLIMUS
  6. FARZIGA [Concomitant]
  7. METFORMIN [Concomitant]
     Active Substance: METFORMIN HYDROCHLORIDE
  8. PANTOPROPAZOLE [Concomitant]
  9. NOVOLOG [Concomitant]
     Active Substance: INSULIN ASPART
  10. TRESIBA [Concomitant]
     Active Substance: INSULIN DEGLUDEC
  11. BAMLANIVIMAB. [Suspect]
     Active Substance: BAMLANIVIMAB
     Indication: COVID-19
     Dosage: ?          OTHER FREQUENCY:ONCE;?
     Route: 042
     Dates: start: 20210113, end: 20210113
  12. HYDROCORTISONE. [Concomitant]
     Active Substance: HYDROCORTISONE
  13. NOVOLIN R [Concomitant]
     Active Substance: INSULIN HUMAN
  14. PRAMIPEXOLE. [Concomitant]
     Active Substance: PRAMIPEXOLE
  15. RIZATRIPTAN. [Concomitant]
     Active Substance: RIZATRIPTAN
  16. TOPIRAMATE. [Concomitant]
     Active Substance: TOPIRAMATE

REACTIONS (3)
  - Bronchospasm [None]
  - Respiratory failure [None]
  - Wrong schedule [None]

NARRATIVE: CASE EVENT DATE: 20210113
